FAERS Safety Report 5090873-4 (Version None)
Quarter: 2006Q3

REPORT INFORMATION
  Report Type: 
  Country: None (occurrence: None)
  Receive Date: 20060823
  Receipt Date: 20060811
  Transmission Date: 20061208
  Serious: Yes (Hospitalization)
  Sender: FDA-Public Use
  Company Number: 2006098437

PATIENT
  Age: 67 Year
  Sex: Male

DRUGS (8)
  1. TOLTERODINE TARTRATE [Suspect]
     Indication: NOCTURIA
     Dosage: 4 MG (4 MG, 1 IN 1 D), ORAL
     Route: 048
     Dates: start: 20060728, end: 20060730
  2. TAMSULOSIN HCL [Concomitant]
  3. EVIPROSTAT (CHIMAPHILA UMBELLATA, EQUISETUM ARVENSE, MANGANESE CHLORID [Concomitant]
  4. IMIDAPRIL (IMIDAPRIL) [Concomitant]
  5. ALL OTHER THERAPEUTIC PRODUCTS (ALL OTHER THERAPEUTIC PRODUCTS) [Concomitant]
  6. AMLODIPINE [Concomitant]
  7. GLICLAZIDE (GLICLAZIDE) [Concomitant]
  8. NIZATIDINE [Concomitant]

REACTIONS (2)
  - DIARRHOEA [None]
  - VOMITING [None]
